FAERS Safety Report 22001405 (Version 13)
Quarter: 2025Q3

REPORT INFORMATION
  Report Type: Report from Study
  Country: US (occurrence: US)
  Receive Date: 20230216
  Receipt Date: 20250929
  Transmission Date: 20251021
  Serious: Yes (Hospitalization, Other)
  Sender: TAKEDA
  Company Number: US-TAKEDA-2023TUS016806

PATIENT
  Age: 13 Year
  Sex: Male

DRUGS (4)
  1. ADVATE [Suspect]
     Active Substance: ANTIHEMOPHILIC FACTOR, HUMAN RECOMBINANT
     Indication: Haemorrhage
  2. ADVATE [Suspect]
     Active Substance: ANTIHEMOPHILIC FACTOR, HUMAN RECOMBINANT
  3. ADVATE [Suspect]
     Active Substance: ANTIHEMOPHILIC FACTOR, HUMAN RECOMBINANT
  4. ADVATE [Suspect]
     Active Substance: ANTIHEMOPHILIC FACTOR, HUMAN RECOMBINANT

REACTIONS (11)
  - Muscle strain [Unknown]
  - Haemorrhage [Recovered/Resolved]
  - Haemarthrosis [Unknown]
  - Contusion [Unknown]
  - Pharyngitis streptococcal [Unknown]
  - Road traffic accident [Unknown]
  - Joint injury [Unknown]
  - Peripheral swelling [Unknown]
  - Genital injury [Unknown]
  - Injury [Unknown]
  - Limb injury [Unknown]

NARRATIVE: CASE EVENT DATE: 20230107
